FAERS Safety Report 5876209-7 (Version None)
Quarter: 2008Q3

REPORT INFORMATION
  Report Type: 
  Country: None (occurrence: None)
  Receive Date: 20080908
  Receipt Date: 20080908
  Transmission Date: 20090109
  Serious: Yes (Other)
  Sender: FDA-Public Use
  Company Number: None

PATIENT
  Age: 55 Year
  Sex: Female
  Weight: 108.8633 kg

DRUGS (1)
  1. LEVAQUIN [Suspect]
     Indication: URINARY TRACT INFECTION
     Dosage: ONCE A  DAY PO
     Route: 048
     Dates: start: 20071104, end: 20071111

REACTIONS (3)
  - DRUG INTERACTION [None]
  - MUSCULAR WEAKNESS [None]
  - MYALGIA [None]
